FAERS Safety Report 13181791 (Version 1)
Quarter: 2017Q1

REPORT INFORMATION
  Report Type: Report from Study
  Country: None (occurrence: BR)
  Receive Date: 20170202
  Receipt Date: 20170202
  Transmission Date: 20170428
  Serious: Yes (Other)
  Sender: FDA-Public Use
  Company Number: BR-ABBVIE-17P-020-1861139-00

PATIENT
  Age: 81 Year
  Sex: Male
  Weight: 63 kg

DRUGS (3)
  1. DEPAKOTE ER [Suspect]
     Active Substance: DIVALPROEX SODIUM
     Dosage: 1000 MG (NIGHT)
     Route: 048
  2. EXELON [Concomitant]
     Active Substance: RIVASTIGMINE TARTRATE
     Indication: DEMENTIA ALZHEIMER^S TYPE
     Dosage: 1.5 TABLET IN THE MORNING/ 3 TABLETS AT NIGHT
     Route: 048
     Dates: start: 20161220
  3. DEPAKOTE ER [Suspect]
     Active Substance: DIVALPROEX SODIUM
     Indication: PRODUCT USED FOR UNKNOWN INDICATION
     Dosage: 1000 MG (500MG MORNING/500MG NIGHT)
     Route: 048
     Dates: start: 20161220

REACTIONS (2)
  - Incorrect dose administered [Unknown]
  - Seizure [Recovered/Resolved]

NARRATIVE: CASE EVENT DATE: 20161220
